FAERS Safety Report 23456699 (Version 1)
Quarter: 2024Q1

REPORT INFORMATION
  Report Type: Spontaneous
  Country: US (occurrence: US)
  Receive Date: 20240130
  Receipt Date: 20240130
  Transmission Date: 20240410
  Serious: No
  Sender: FDA-Public Use
  Company Number: US-VIRTUS PHARMACEUTICALS, LLC-2023VTS00009

PATIENT
  Sex: Female

DRUGS (1)
  1. LEVORPHANOL TARTRATE [Suspect]
     Active Substance: LEVORPHANOL TARTRATE
     Indication: Pain

REACTIONS (2)
  - Drug level below therapeutic [Unknown]
  - Drug withdrawal syndrome [Unknown]
